FAERS Safety Report 7619904-1 (Version None)
Quarter: 2011Q3

REPORT INFORMATION
  Report Type: 
  Country: None (occurrence: None)
  Receive Date: 20110719
  Receipt Date: 20110706
  Transmission Date: 20111222
  Serious: Yes (Other)
  Sender: FDA-Public Use
  Company Number: AR-ELI_LILLY_AND_COMPANY-AR201106006523

PATIENT
  Age: 7 Year
  Sex: Male

DRUGS (1)
  1. HUTROPE [Suspect]
     Indication: GROWTH HORMONE DEFICIENCY
     Dosage: 0.50 MG, QD
     Route: 058
     Dates: start: 20110301

REACTIONS (7)
  - DIARRHOEA [None]
  - SYNCOPE [None]
  - DECREASED APPETITE [None]
  - NASAL CONGESTION [None]
  - VOMITING [None]
  - EYE INFLAMMATION [None]
  - PYREXIA [None]
